FAERS Safety Report 10356483 (Version 5)
Quarter: 2016Q1

REPORT INFORMATION
  Report Type: Report from Study
  Country: US (occurrence: US)
  Receive Date: 20140801
  Receipt Date: 20160126
  Transmission Date: 20160525
  Serious: Yes (Hospitalization, Other)
  Sender: FDA-Public Use
  Company Number: US-ROCHE-1443379

PATIENT
  Sex: Male
  Weight: 50 kg

DRUGS (7)
  1. NUTROPIN AQ [Suspect]
     Active Substance: SOMATROPIN
     Indication: BODY HEIGHT BELOW NORMAL
     Route: 058
  2. NUTROPIN AQ [Suspect]
     Active Substance: SOMATROPIN
     Dosage: 7 DAYS A WEEK
     Route: 058
     Dates: start: 20150107
  3. NUTROPIN AQ [Suspect]
     Active Substance: SOMATROPIN
     Route: 058
     Dates: start: 20150107
  4. SYNTHROID [Concomitant]
     Active Substance: LEVOTHYROXINE SODIUM
     Route: 065
  5. ARIMIDEX [Concomitant]
     Active Substance: ANASTROZOLE
     Route: 065
  6. NUTROPIN AQ [Suspect]
     Active Substance: SOMATROPIN
     Dosage: 7 DAYS A WEEK
     Route: 058
     Dates: end: 20150107
  7. SYNTHROID [Concomitant]
     Active Substance: LEVOTHYROXINE SODIUM
     Route: 065

REACTIONS (8)
  - Growth retardation [Unknown]
  - Chest pain [Unknown]
  - Goitre [Unknown]
  - Depression [Unknown]
  - Acne [Unknown]
  - Vitamin D deficiency [Unknown]
  - Hypocalcaemia [Unknown]
  - Malaise [Unknown]
